FAERS Safety Report 24411474 (Version 1)
Quarter: 2024Q4

REPORT INFORMATION
  Report Type: Spontaneous
  Country: US (occurrence: None)
  Receive Date: 20241007
  Receipt Date: 20241007
  Transmission Date: 20250115
  Serious: No
  Sender: Public
  Company Number: None

PATIENT
  Age: 57 Year
  Sex: Male
  Weight: 89 kg

DRUGS (1)
  1. NAPROXEN [Suspect]
     Active Substance: NAPROXEN
     Dosage: FREQUENCY : TWICE A DAY;?
     Route: 048
     Dates: start: 20240301, end: 20240330

REACTIONS (5)
  - Gastrointestinal haemorrhage [None]
  - Blood loss anaemia [None]
  - Fall [None]
  - Upper limb fracture [None]
  - Gastritis [None]

NARRATIVE: CASE EVENT DATE: 20240401
